FAERS Safety Report 4996830-8 (Version None)
Quarter: 2006Q2

REPORT INFORMATION
  Report Type: 
  Country: None (occurrence: None)
  Receive Date: 20060509
  Receipt Date: 20060119
  Transmission Date: 20061013
  Serious: Yes (Hospitalization)
  Sender: FDA-Public Use
  Company Number: US-MERCK-0601USA02588

PATIENT
  Age: 50 Year
  Sex: Female
  Weight: 82 kg

DRUGS (9)
  1. VIOXX [Suspect]
     Indication: ARTHRITIS
     Route: 048
     Dates: start: 19970101, end: 20040119
  2. BEXTRA [Concomitant]
     Route: 048
     Dates: start: 20040317, end: 20040417
  3. CYCLOBENZAPRINE(WEST POINT PHARMA) [Concomitant]
     Indication: MUSCLE RELAXANT THERAPY
     Route: 048
     Dates: start: 20031213, end: 20040508
  4. HYDROCODONE BITARTRATE + ACETAMINOPHEN [Concomitant]
     Indication: ANALGESIC EFFECT
     Route: 048
     Dates: start: 20031213, end: 20040404
  5. ACETAMINOPHEN AND PROPOXYPHENE NAPSYLATE [Concomitant]
     Route: 048
     Dates: start: 20021001, end: 20040812
  6. ULTRACET [Concomitant]
     Indication: ANALGESIC EFFECT
     Route: 065
     Dates: start: 20040914, end: 20041107
  7. ASPIRIN [Concomitant]
     Route: 065
  8. PLAVIX [Concomitant]
     Route: 065
     Dates: start: 20021001, end: 20040902
  9. LIPITOR [Concomitant]
     Route: 065
     Dates: start: 20030515, end: 20030601

REACTIONS (14)
  - ARTHRITIS [None]
  - BACTERIAL INFECTION [None]
  - CEREBROVASCULAR ACCIDENT [None]
  - CONSTIPATION [None]
  - CYSTITIS [None]
  - DEPRESSION [None]
  - GASTROOESOPHAGEAL REFLUX DISEASE [None]
  - HYPERSENSITIVITY [None]
  - HYPERTENSION [None]
  - HYPOTHYROIDISM [None]
  - INSOMNIA [None]
  - NEPHROLITHIASIS [None]
  - PANIC DISORDER [None]
  - TACHYCARDIA [None]
